FAERS Safety Report 12162145 (Version 1)
Quarter: 2016Q1

REPORT INFORMATION
  Report Type: Spontaneous
  Country: US (occurrence: US)
  Receive Date: 20160309
  Receipt Date: 20160309
  Transmission Date: 20160526
  Serious: No
  Sender: FDA-Public Use
  Company Number: US-BIOGEN-2016BI00194835

PATIENT
  Sex: Female

DRUGS (1)
  1. TECFIDERA [Suspect]
     Active Substance: DIMETHYL FUMARATE
     Indication: MULTIPLE SCLEROSIS
     Route: 065
     Dates: start: 20160203

REACTIONS (6)
  - Fall [Recovered/Resolved]
  - Pain [Unknown]
  - Drug ineffective [Unknown]
  - Mental impairment [Unknown]
  - Loss of control of legs [Recovered/Resolved]
  - Pain in extremity [Unknown]
